FAERS Safety Report 5143246-X (Version None)
Quarter: 2006Q4

REPORT INFORMATION
  Report Type: 
  Country: None (occurrence: None)
  Receive Date: 20061103
  Receipt Date: 20061013
  Transmission Date: 20070319
  Serious: Yes (Hospitalization, Disabling)
  Sender: FDA-Public Use
  Company Number: FR-AMGEN-UK196919

PATIENT
  Age: 53 Year
  Sex: Female

DRUGS (4)
  1. NEULASTA [Suspect]
     Indication: CHEMOTHERAPY
     Route: 058
     Dates: start: 20060921, end: 20060921
  2. FLUOROURACIL [Concomitant]
     Route: 065
     Dates: start: 20060920
  3. EPIRUBICIN [Concomitant]
     Route: 065
     Dates: start: 20060920
  4. CYCLOPHOSPHAMIDE [Concomitant]
     Route: 065
     Dates: start: 20060920

REACTIONS (5)
  - BRONCHOSPASM [None]
  - FEBRILE NEUTROPENIA [None]
  - HYPERSENSITIVITY [None]
  - OEDEMA [None]
  - RASH GENERALISED [None]
